FAERS Safety Report 18656667 (Version 2)
Quarter: 2021Q2

REPORT INFORMATION
  Report Type: Report from Study
  Country: None (occurrence: FR)
  Receive Date: 20201223
  Receipt Date: 20210419
  Transmission Date: 20210717
  Serious: Yes (Hospitalization, Other)
  Sender: FDA-Public Use
  Company Number: FR-ABBVIE-20K-056-3702405-00

PATIENT
  Age: 70 Year
  Sex: Female

DRUGS (8)
  1. DUODOPA [Suspect]
     Active Substance: CARBIDOPA\LEVODOPA
     Dosage: CONTINUOUS FLOW RATE 3.7 ML/H
     Route: 050
     Dates: end: 20210310
  2. MANTADIX [Concomitant]
     Active Substance: AMANTADINE HYDROCHLORIDE
     Dates: start: 20200911, end: 202104
  3. REQUIP [Concomitant]
     Active Substance: ROPINIROLE HYDROCHLORIDE
     Indication: PRODUCT USED FOR UNKNOWN INDICATION
     Route: 048
     Dates: end: 20210310
  4. DUODOPA [Suspect]
     Active Substance: CARBIDOPA\LEVODOPA
     Indication: PARKINSON^S DISEASE
     Dosage: MORNING DOSE:7.5 ML
     Route: 050
     Dates: start: 201606
  5. DUODOPA [Suspect]
     Active Substance: CARBIDOPA\LEVODOPA
     Dosage: MORNING DOSE 10.5ML, CONTINUOUS FLOW RATE 3.5 ML/H, ADDITIONAL?DOSE 2.5 ML
     Route: 050
     Dates: start: 202104
  6. MANTADIX [Concomitant]
     Active Substance: AMANTADINE HYDROCHLORIDE
     Indication: PRODUCT USED FOR UNKNOWN INDICATION
     Route: 048
     Dates: end: 202009
  7. DUODOPA [Suspect]
     Active Substance: CARBIDOPA\LEVODOPA
     Dosage: MORNING DOSE 9 ML, CONTINUOUS FLOW RATE 3.5 ML/H, ADDITIONAL?DOSE 2 ML
     Route: 050
     Dates: start: 20210310, end: 202104
  8. COVID?19 VACCINE NOS. [Concomitant]
     Active Substance: COVID-19 VACCINE NOS
     Indication: COVID-19 IMMUNISATION
     Dosage: PFIZER
     Route: 050
     Dates: start: 20210408, end: 20210408

REACTIONS (27)
  - Unevaluable event [Not Recovered/Not Resolved]
  - Anxiety [Not Recovered/Not Resolved]
  - Memory impairment [Unknown]
  - Impatience [Unknown]
  - Vitamin D deficiency [Unknown]
  - Confusional state [Unknown]
  - On and off phenomenon [Unknown]
  - Nocturia [Unknown]
  - Depressed mood [Unknown]
  - Hallucination [Not Recovered/Not Resolved]
  - Dyskinesia [Not Recovered/Not Resolved]
  - Akinesia [Unknown]
  - Therapeutic product effect decreased [Unknown]
  - Initial insomnia [Unknown]
  - Cognitive disorder [Unknown]
  - Hyperhomocysteinaemia [Unknown]
  - Sleep disorder [Unknown]
  - Depression [Not Recovered/Not Resolved]
  - Folate deficiency [Unknown]
  - Product prescribing error [Unknown]
  - Hallucination, visual [Unknown]
  - Orthostatic hypotension [Unknown]
  - Overdose [Unknown]
  - Loss of personal independence in daily activities [Unknown]
  - Disturbance in attention [Unknown]
  - Fall [Not Recovered/Not Resolved]
  - Freezing phenomenon [Not Recovered/Not Resolved]

NARRATIVE: CASE EVENT DATE: 2021
